FAERS Safety Report 18141721 (Version 1)
Quarter: 2020Q3

REPORT INFORMATION
  Report Type: Spontaneous
  Country: GR (occurrence: GR)
  Receive Date: 20200812
  Receipt Date: 20200812
  Transmission Date: 20201103
  Serious: Yes (Other)
  Sender: FDA-Public Use
  Company Number: NVSC2020GR222195

PATIENT
  Age: 13 Year
  Sex: Male

DRUGS (1)
  1. AMOXICILLIN, CLAVULANIC ACID [Suspect]
     Active Substance: AMOXICILLIN\CLAVULANIC ACID
     Indication: LYMPHADENOPATHY
     Dosage: UNK
     Route: 065

REACTIONS (10)
  - Product use in unapproved indication [Unknown]
  - Systemic lupus erythematosus [Recovering/Resolving]
  - Arthralgia [Recovering/Resolving]
  - Hepatomegaly [Recovering/Resolving]
  - Splenomegaly [Recovering/Resolving]
  - Fatigue [Recovering/Resolving]
  - Weight decreased [Recovering/Resolving]
  - Lymphadenopathy [Recovering/Resolving]
  - Malaise [Recovering/Resolving]
  - Drug ineffective [Unknown]
